FAERS Safety Report 18701644 (Version 1)
Quarter: 2021Q1

REPORT INFORMATION
  Report Type: Other
  Country: GB (occurrence: GB)
  Receive Date: 20210105
  Receipt Date: 20210105
  Transmission Date: 20210419
  Serious: Yes (Disabling, Other)
  Sender: FDA-Public Use
  Company Number: GB-VERITY PHARMACEUTICALS, INC.-2020VTY00584

PATIENT
  Age: 8 Year
  Sex: Female
  Weight: 33.9 kg

DRUGS (1)
  1. TRIPTORELIN PAMOATE [Suspect]
     Active Substance: TRIPTORELIN PAMOATE
     Indication: PRECOCIOUS PUBERTY
     Dosage: 22.5 MG
     Route: 051

REACTIONS (5)
  - Depression [Not Recovered/Not Resolved]
  - Headache [Recovering/Resolving]
  - Breast pain [Not Recovered/Not Resolved]
  - Depressed mood [Not Recovered/Not Resolved]
  - Abdominal pain upper [Not Recovered/Not Resolved]
